FAERS Safety Report 21866726 (Version 2)
Quarter: 2023Q1

REPORT INFORMATION
  Report Type: Spontaneous
  Country: US (occurrence: US)
  Receive Date: 20230116
  Receipt Date: 20230303
  Transmission Date: 20230417
  Serious: No
  Sender: FDA-Public Use
  Company Number: US-SA-SAC20230113001153

PATIENT
  Age: 39 Year
  Sex: Female

DRUGS (1)
  1. DUPIXENT [Suspect]
     Active Substance: DUPILUMAB
     Dosage: 300 MG, FREQUENCY-OTHER
     Route: 058

REACTIONS (3)
  - Dry skin [Unknown]
  - Pruritus [Unknown]
  - Erythema [Unknown]
